FAERS Safety Report 6860768-1 (Version None)
Quarter: 2010Q3

REPORT INFORMATION
  Report Type: 
  Country: None (occurrence: None)
  Receive Date: 20100719
  Receipt Date: 20100719
  Transmission Date: 20110219
  Serious: Yes (Hospitalization)
  Sender: FDA-Public Use
  Company Number: None

PATIENT
  Sex: Female
  Weight: 63.5036 kg

DRUGS (1)
  1. YAZ [Suspect]
     Indication: CONTRACEPTION
     Dosage: 3 MG DAILY PO
     Route: 048
     Dates: start: 20090101, end: 20100430

REACTIONS (3)
  - CHOLECYSTECTOMY [None]
  - GALLBLADDER PAIN [None]
  - VOMITING [None]
